FAERS Safety Report 6899720-9 (Version None)
Quarter: 2010Q3

REPORT INFORMATION
  Report Type: 
  Country: None (occurrence: None)
  Receive Date: 20100803
  Receipt Date: 20100728
  Transmission Date: 20110219
  Serious: Yes (Death)
  Sender: FDA-Public Use
  Company Number: GB-TEVA-243137ISR

PATIENT
  Age: 26 Year
  Sex: Male

DRUGS (3)
  1. DIAZEPAM [Suspect]
  2. TEMAZEPAM [Interacting]
  3. METHADONE HCL [Interacting]

REACTIONS (2)
  - DRUG INTERACTION [None]
  - THERAPEUTIC AGENT TOXICITY [None]
